FAERS Safety Report 8013239-3 (Version None)
Quarter: 2011Q4

REPORT INFORMATION
  Report Type: 
  Country: None (occurrence: None)
  Receive Date: 20111229
  Receipt Date: 20111229
  Transmission Date: 20120403
  Serious: Yes (Life-Threatening, Hospitalization, Disabling, Other)
  Sender: FDA-Public Use
  Company Number: None

PATIENT
  Age: 41 Year
  Sex: Male
  Weight: 81.646 kg

DRUGS (1)
  1. ACCUTANE [Suspect]
     Indication: ACNE
     Dosage: 2 PER DAY
     Dates: start: 19850101, end: 19850829

REACTIONS (10)
  - FACIAL PAIN [None]
  - FEELING ABNORMAL [None]
  - SUICIDE ATTEMPT [None]
  - INTENTIONAL SELF-INJURY [None]
  - OVERDOSE [None]
  - MIGRAINE [None]
  - CARBON MONOXIDE POISONING [None]
  - QUALITY OF LIFE DECREASED [None]
  - ASPHYXIA [None]
  - SCHIZOPHRENIA [None]
